FAERS Safety Report 10071201 (Version 1)
Quarter: 2014Q2

REPORT INFORMATION
  Report Type: Spontaneous
  Country: IT (occurrence: IT)
  Receive Date: 20140410
  Receipt Date: 20140410
  Transmission Date: 20141212
  Serious: Yes (Other)
  Sender: FDA-Public Use
  Company Number: PHHY2014IT041311

PATIENT
  Age: 68 Year
  Sex: 0

DRUGS (2)
  1. GEMCITABINA ACCORD [Concomitant]
     Dosage: UNK UKN, UNK
  2. CARBOPLATIN SANDOZ [Suspect]
     Indication: OVARIAN CANCER
     Dosage: 600 MG, UNK

REACTIONS (5)
  - Hyperhidrosis [Recovered/Resolved]
  - Dyspnoea [Recovered/Resolved]
  - Erythema [Recovered/Resolved]
  - Hypotension [Recovered/Resolved]
  - Malaise [Recovered/Resolved]
